FAERS Safety Report 6900645-0 (Version None)
Quarter: 2010Q3

REPORT INFORMATION
  Report Type: 
  Country: None (occurrence: None)
  Receive Date: 20100730
  Receipt Date: 20100719
  Transmission Date: 20110219
  Serious: Yes (Death, Hospitalization)
  Sender: FDA-Public Use
  Company Number: 2010MA001016

PATIENT
  Age: 71 Year
  Sex: Male

DRUGS (11)
  1. INDAPAMIDE [Suspect]
     Dosage: 2.5 MG; QD; PO
     Route: 048
  2. TETANUS TOXOID (TETANUS TOXOID) [Suspect]
     Dates: start: 20030211
  3. METHYLPREDNISOLONE [Suspect]
     Dosage: 40 MG
     Dates: start: 20030212, end: 20030212
  4. HYCAMTIN [Suspect]
     Indication: SMALL CELL LUNG CANCER STAGE UNSPECIFIED
     Dosage: 3.6 MG; QD; IV
     Route: 042
     Dates: start: 20030130, end: 20030201
  5. CEFTAZIDIME PENTAHYDRATE [Suspect]
     Dates: start: 20030211
  6. DIAZEPAM [Suspect]
     Dosage: 10 MG; IV
     Route: 042
     Dates: start: 20030212
  7. NORVASC [Suspect]
     Dosage: 5 MG; QD; PO
     Route: 048
  8. ENALAPRIL MALEATE [Suspect]
     Dosage: 20 MG; QD
  9. DIFLUCAN [Suspect]
     Dosage: 50 MG; QD
  10. PLATINOL [Suspect]
     Dosage: 90 MG; IV
     Route: 042
     Dates: start: 20030201, end: 20030201
  11. BISOPROLOL FUMARATE [Suspect]
     Dosage: 10 MG; QD

REACTIONS (10)
  - ANAEMIA [None]
  - CARDIAC ARREST [None]
  - CONVULSION [None]
  - FALL [None]
  - HEAD INJURY [None]
  - HYPOPHAGIA [None]
  - NAUSEA [None]
  - PYREXIA [None]
  - THROMBOCYTOPENIA [None]
  - WOUND [None]
